FAERS Safety Report 23733600 (Version 1)
Quarter: 2024Q2

REPORT INFORMATION
  Report Type: Spontaneous
  Country: JP (occurrence: JP)
  Receive Date: 20240411
  Receipt Date: 20240411
  Transmission Date: 20240715
  Serious: Yes (Other)
  Sender: FDA-Public Use
  Company Number: JP-002147023-NVSJ2024JP004203

PATIENT
  Age: 74 Year
  Sex: Male

DRUGS (1)
  1. NILOTINIB [Suspect]
     Active Substance: NILOTINIB
     Indication: Chronic myeloid leukaemia
     Dosage: 800 MG (SINCE 12 YEARS AGO)
     Route: 048

REACTIONS (3)
  - Carotid artery stenosis [Unknown]
  - Cerebral artery stenosis [Unknown]
  - Cerebral infarction [Unknown]
